FAERS Safety Report 24266475 (Version 1)
Quarter: 2024Q3

REPORT INFORMATION
  Report Type: Spontaneous
  Country: JP (occurrence: JP)
  Receive Date: 20240830
  Receipt Date: 20240830
  Transmission Date: 20241017
  Serious: Yes (Other)
  Sender: TAKEDA
  Company Number: JP-SHIRE-JP201924337

PATIENT

DRUGS (1)
  1. INTUNIV [Suspect]
     Active Substance: GUANFACINE HYDROCHLORIDE
     Indication: Attention deficit hyperactivity disorder
     Route: 065

REACTIONS (13)
  - Arrhythmia [Unknown]
  - Paraesthesia [Unknown]
  - Intentional product misuse [Unknown]
  - Face oedema [Unknown]
  - Dysgeusia [Unknown]
  - Somnolence [Recovering/Resolving]
  - Blood pressure decreased [Unknown]
  - Somnolence [Unknown]
  - Dizziness [Unknown]
  - Enuresis [Unknown]
  - Insomnia [Unknown]
  - Somnolence [Unknown]
  - Dysgeusia [Unknown]
